FAERS Safety Report 17634216 (Version 1)
Quarter: 2020Q2

REPORT INFORMATION
  Report Type: Report from Study
  Country: None (occurrence: TN)
  Receive Date: 20200406
  Receipt Date: 20200406
  Transmission Date: 20200713
  Serious: Yes (Hospitalization)
  Sender: FDA-Public Use
  Company Number: TN-ABBVIE-20K-160-3353087-00

PATIENT
  Age: 51 Year
  Sex: Male

DRUGS (3)
  1. NORMIX [Concomitant]
     Active Substance: RIFAXIMIN
     Indication: DIARRHOEA
     Route: 048
  2. IMUREL [Concomitant]
     Active Substance: AZATHIOPRINE SODIUM
     Indication: CROHN^S DISEASE
     Route: 048
  3. HUMIRA [Suspect]
     Active Substance: ADALIMUMAB
     Indication: CROHN^S DISEASE
     Route: 058
     Dates: start: 201608, end: 201912

REACTIONS (2)
  - Gastrointestinal inflammation [Recovered/Resolved]
  - Faecal calprotectin increased [Recovered/Resolved]

NARRATIVE: CASE EVENT DATE: 201901
